FAERS Safety Report 11115430 (Version 1)
Quarter: 2015Q2

REPORT INFORMATION
  Report Type: Report from Study
  Country: US (occurrence: None)
  Receive Date: 20150511
  Receipt Date: 20150511
  Transmission Date: 20150821
  Serious: Yes (Other)
  Sender: FDA-Public Use
  Company Number: 2014FE01256

PATIENT
  Sex: Male

DRUGS (1)
  1. DEGARELIX (DEGARELIX) POWDER AND SOLVENT FOR SOLUTION FOR INJECTION [Suspect]
     Active Substance: DEGARELIX
     Indication: PROSTATE CANCER
     Route: 058
     Dates: start: 20140501, end: 20140501

REACTIONS (4)
  - Injection site mass [None]
  - Injection site pain [None]
  - Injection site erythema [None]
  - Injection site warmth [None]

NARRATIVE: CASE EVENT DATE: 201405
